FAERS Safety Report 4417412-2 (Version None)
Quarter: 2004Q3

REPORT INFORMATION
  Report Type: 
  Country: None (occurrence: None)
  Receive Date: 20040803
  Receipt Date: 20040719
  Transmission Date: 20050211
  Serious: No
  Sender: FDA-Public Use
  Company Number: 04P-163-0267435-00

PATIENT
  Age: 14 Year
  Sex: Female
  Weight: 82.1011 kg

DRUGS (5)
  1. HUMIRA [Suspect]
     Indication: JUVENILE ARTHRITIS
     Dosage: 40 MG, 1 IN 2 WK, SUBCUTANEOUS
     Route: 058
     Dates: start: 20040315, end: 20040622
  2. METHOTREXATE [Concomitant]
  3. PREDNISONE [Concomitant]
  4. FOLIC ACID [Concomitant]
  5. ROFECOXIB [Concomitant]

REACTIONS (6)
  - DYSPNOEA [None]
  - FEELING COLD [None]
  - RHEUMATOID ARTHRITIS [None]
  - SWELLING FACE [None]
  - TREMOR [None]
  - URTICARIA [None]
